FAERS Safety Report 23792699 (Version 2)
Quarter: 2024Q3

REPORT INFORMATION
  Report Type: Report from Study
  Country: US (occurrence: US)
  Receive Date: 20240429
  Receipt Date: 20240722
  Transmission Date: 20241016
  Serious: Yes (Other)
  Sender: UCB
  Company Number: US-UCBSA-2023057444

PATIENT
  Sex: Male

DRUGS (3)
  1. FINTEPLA [Suspect]
     Active Substance: FENFLURAMINE
     Indication: Lennox-Gastaut syndrome
     Dosage: 4 MILLIGRAM, 2X/DAY (BID)
     Dates: start: 20231111
  2. FINTEPLA [Suspect]
     Active Substance: FENFLURAMINE
     Dosage: 4.2 MILLILITER, 2X/DAY (BID)
  3. FINTEPLA [Suspect]
     Active Substance: FENFLURAMINE
     Dosage: 4.2 MILLILITER, 2X/DAY (BID)

REACTIONS (4)
  - Seizure [Not Recovered/Not Resolved]
  - Myocardial ischaemia [Not Recovered/Not Resolved]
  - Viral infection [Not Recovered/Not Resolved]
  - Electrocardiogram T wave abnormal [Not Recovered/Not Resolved]

NARRATIVE: CASE EVENT DATE: 20230101
